FAERS Safety Report 4812040-9 (Version None)
Quarter: 2005Q4

REPORT INFORMATION
  Report Type: 
  Country: None (occurrence: None)
  Receive Date: 20051028
  Receipt Date: 20041025
  Transmission Date: 20060501
  Serious: No
  Sender: FDA-Public Use
  Company Number: US-GLAXOSMITHKLINE-A0531241A

PATIENT
  Age: 62 Year
  Sex: Female

DRUGS (5)
  1. ADVAIR DISKUS 100/50 [Suspect]
     Indication: BRONCHITIS
     Dosage: 1PUFF TWICE PER DAY
     Route: 055
     Dates: start: 20041001, end: 20041021
  2. CELLCEPT [Concomitant]
  3. COZAAR [Concomitant]
  4. ATENOLOL [Concomitant]
  5. HYOSCYAMINE [Concomitant]

REACTIONS (2)
  - CROUP INFECTIOUS [None]
  - DRUG INEFFECTIVE [None]
